FAERS Safety Report 7062566 (Version 1)
Quarter: 2020Q3

REPORT INFORMATION
  Report Type: Report from Study
  Country: US (occurrence: US)
  Receive Date: 20090724
  Receipt Date: 20090724
  Transmission Date: 20201104
  Serious: Yes (Other)
  Sender: FDA-Public Use
  Company Number: US-JNJFOC-20031002031

PATIENT
  Sex: Female
  Weight: 58.06 kg

DRUGS (7)
  1. RISPERIDONE. [Suspect]
     Active Substance: RISPERIDONE
     Indication: SCHIZOPHRENIA
     Dosage: NO DRUG
     Route: 048
     Dates: start: 20030930, end: 20031110
  2. FERROUS SULFATE. [Concomitant]
     Active Substance: FERROUS SULFATE
     Indication: ANAEMIA
     Route: 048
  3. TRAZODONE [Concomitant]
     Active Substance: TRAZODONE HYDROCHLORIDE
     Route: 048
  4. TRAZODONE [Concomitant]
     Active Substance: TRAZODONE HYDROCHLORIDE
     Indication: SLEEP DISORDER THERAPY
     Route: 048
  5. RISPERDAL [Concomitant]
     Active Substance: RISPERIDONE
  6. ATIVAN [Concomitant]
     Active Substance: LORAZEPAM
     Route: 048
  7. RISPERIDONE. [Suspect]
     Active Substance: RISPERIDONE
     Route: 048
     Dates: start: 20030930, end: 20031110

REACTIONS (1)
  - Iron deficiency anaemia [Recovered/Resolved]
